FAERS Safety Report 9781674 (Version 2)
Quarter: 2014Q1

REPORT INFORMATION
  Report Type: Spontaneous
  Country: IN (occurrence: IN)
  Receive Date: 20131224
  Receipt Date: 20140204
  Transmission Date: 20141002
  Serious: Yes (Hospitalization)
  Sender: FDA-Public Use
  Company Number: PHHY2013IN145696

PATIENT
  Age: 30 Year
  Sex: Male

DRUGS (7)
  1. OXCARBAZEPINE [Suspect]
     Indication: MANIA
     Dosage: 900 MG, UNK
  2. OLANZAPINE [Suspect]
     Indication: MANIA
     Dosage: 20 MG, FOR ABOUT 1 YEAR
  3. HALOPERIDOL [Suspect]
     Indication: AGITATION
     Dosage: 30 MG, PER DAY
  4. HALOPERIDOL [Suspect]
     Dosage: 20 MG PER DAY
  5. HALOPERIDOL [Suspect]
     Indication: AGITATION
     Dosage: 10 MG, UNK
     Route: 030
  6. THIOPENTONE [Concomitant]
  7. SUCCINYLCHOLINE [Concomitant]

REACTIONS (7)
  - Delusion of grandeur [Unknown]
  - Agitation [Unknown]
  - Irritability [Unknown]
  - Insomnia [Unknown]
  - Aggression [Unknown]
  - Delirium [Unknown]
  - Drug ineffective [Unknown]
